FAERS Safety Report 7688089-8 (Version None)
Quarter: 2011Q3

REPORT INFORMATION
  Report Type: 
  Country: None (occurrence: None)
  Receive Date: 20110817
  Receipt Date: 20110812
  Transmission Date: 20111222
  Serious: Yes (Hospitalization, Other)
  Sender: FDA-Public Use
  Company Number: ZA-BRISTOL-MYERS SQUIBB COMPANY-15736044

PATIENT
  Age: 17 Year
  Sex: Female
  Weight: 70 kg

DRUGS (9)
  1. VANCOMYCIN [Concomitant]
     Dates: start: 20110627
  2. AMOXIL [Concomitant]
     Dates: start: 20110606
  3. ANDOLEX [Concomitant]
     Dosage: MOUTH WASH
  4. PIPERACILLIN AND TAZOBACTAM [Concomitant]
     Dates: start: 20110625
  5. ACETAMINOPHEN [Concomitant]
     Dates: start: 20110606
  6. DASATINIB [Suspect]
     Indication: LEUKAEMIA
     Dosage: INTERRUPTED ON 07JUN2011
     Route: 048
     Dates: start: 20110509
  7. AMIKACIN [Concomitant]
     Dates: start: 20110625
  8. MORPHINE [Concomitant]
     Route: 048
  9. LACTULOSE [Concomitant]

REACTIONS (8)
  - ORAL HERPES [None]
  - BLAST CELL CRISIS [None]
  - NEUTROPENIA [None]
  - PYREXIA [None]
  - FEBRILE NEUTROPENIA [None]
  - PAIN [None]
  - BRONCHOPNEUMONIA [None]
  - ANAL ULCER [None]
